FAERS Safety Report 9483947 (Version 2)
Quarter: 2013Q3

REPORT INFORMATION
  Report Type: Spontaneous
  Country: CA (occurrence: CA)
  Receive Date: 20130828
  Receipt Date: 20130828
  Transmission Date: 20140515
  Serious: Yes (Hospitalization, Other)
  Sender: FDA-Public Use
  Company Number: CA-AMGEN-KDL351169

PATIENT
  Age: 80 Year
  Sex: Female

DRUGS (15)
  1. ENBREL [Suspect]
     Indication: RHEUMATOID ARTHRITIS
     Dosage: UNK UNK, QWK
     Route: 065
     Dates: start: 20090507
  2. CALCITE [Concomitant]
     Dosage: UNK UNK, QOD
  3. CLONAZEPAM [Concomitant]
     Dosage: .5 MG, QD
     Route: 048
  4. FOLIC ACID [Concomitant]
     Dosage: 5 MG, 4 TIMES/WK
     Route: 048
  5. PREDNISONE [Concomitant]
     Dosage: 5 MG, QD
     Route: 048
  6. SIMVASTATIN [Concomitant]
     Dosage: 20 MG, QD
     Route: 048
  7. METHOTREXATE [Concomitant]
     Dosage: 25 MG, QWK
     Route: 058
  8. ESOMEPRAZOLE MAGNESIUM [Concomitant]
     Dosage: 40 MG, QD
     Route: 048
  9. ACTONEL [Concomitant]
     Dosage: 35 MG, QWK
  10. HYDROXYQUINOLINE [Concomitant]
     Dosage: 200 MG, BID
     Route: 048
  11. HYDROCHLOROTHIAZIDE [Concomitant]
     Dosage: 12.5 MG, QD
  12. FOSINOPRIL [Concomitant]
     Dosage: 20 MG, QD
     Route: 048
  13. PREGABALIN [Concomitant]
     Dosage: 50 MG, QD
  14. ACETAMINOPHEN [Concomitant]
     Dosage: 500 MG, Q4H
     Route: 048
  15. UNSPECIFIED MEDICATION [Concomitant]
     Dosage: 20 MG, BID
     Route: 048

REACTIONS (10)
  - Oedema peripheral [Recovered/Resolved]
  - Pollakiuria [Unknown]
  - Induration [Unknown]
  - Sensation of heaviness [Unknown]
  - Feeling hot [Unknown]
  - Skin discolouration [Unknown]
  - Contusion [Unknown]
  - Dyspnoea [Unknown]
  - Sleep disorder [Unknown]
  - Muscle tightness [Unknown]
